FAERS Safety Report 21926783 (Version 1)
Quarter: 2023Q1

REPORT INFORMATION
  Report Type: Spontaneous
  Country: US (occurrence: None)
  Receive Date: 20230127
  Receipt Date: 20230127
  Transmission Date: 20230418
  Serious: No
  Sender: FDA-Public Use
  Company Number: None

PATIENT
  Age: 57 Year
  Sex: Female

DRUGS (1)
  1. PROPARACAINE [Suspect]
     Active Substance: PROPARACAINE
     Dosage: OTHER ROUTE : EYE DROPS;?
     Route: 050

REACTIONS (1)
  - Eye pain [None]

NARRATIVE: CASE EVENT DATE: 20230127
